FAERS Safety Report 24416973 (Version 2)
Quarter: 2024Q4

REPORT INFORMATION
  Report Type: Spontaneous
  Country: ES (occurrence: ES)
  Receive Date: 20241009
  Receipt Date: 20241011
  Transmission Date: 20250114
  Serious: Yes (Life-Threatening, Other)
  Sender: PFIZER
  Company Number: None

PATIENT
  Age: 68 Year
  Sex: Male
  Weight: 115 kg

DRUGS (25)
  1. RITUXIMAB [Interacting]
     Active Substance: RITUXIMAB
     Indication: Myasthenia gravis
     Dosage: 1 G, CYCLIC, EVERY 15 DAYS
     Route: 042
     Dates: start: 20240703, end: 20240717
  2. AZATHIOPRINE [Interacting]
     Active Substance: AZATHIOPRINE
     Indication: Myasthenia gravis
     Dosage: 1 DF, 3X/DAY, 1-1-1
     Route: 048
     Dates: start: 20231007, end: 20240911
  3. ALLOPURINOL [Interacting]
     Active Substance: ALLOPURINOL
     Indication: Hyperuricaemia
     Dosage: 100 MG, 1X/DAY, AT BREAKFAST
     Route: 048
     Dates: start: 20240828, end: 20240916
  4. EDOXABAN TOSYLATE [Concomitant]
     Active Substance: EDOXABAN TOSYLATE
     Indication: Atrial flutter
     Dosage: 30 MG, 1X/DAY, AT DINNER
     Route: 048
     Dates: start: 20240710
  5. PREDNISONE [Concomitant]
     Active Substance: PREDNISONE
     Indication: Myasthenia gravis
     Dosage: 5 MG, 1X/DAY, AT BREAKFAST
     Route: 048
     Dates: start: 20231008
  6. PREDNISONE [Concomitant]
     Active Substance: PREDNISONE
     Indication: Myasthenia gravis
     Dosage: 40 MG, 1X/DAY, AT BREAKFAST
     Route: 048
     Dates: start: 20231007
  7. OZEMPIC [Concomitant]
     Active Substance: SEMAGLUTIDE
     Indication: Type 2 diabetes mellitus
     Dosage: 100 MG, WEEKLY, EVERY 7 DAYS
     Route: 058
     Dates: start: 20240830
  8. CITALOPRAM CINFA [Concomitant]
     Dosage: 30 MG, 1X/DAY, AT NIGHT
     Route: 048
     Dates: start: 20231006
  9. PANTOPRAZOL TEVAGEN [Concomitant]
     Indication: Dyspepsia
     Dosage: 40 MG, 1X/DAY, AT BREAKFAST
     Route: 048
     Dates: start: 20121205
  10. ALZIL PLUS [Concomitant]
     Indication: Type 2 diabetes mellitus
     Dosage: 1 DF, 1X/DAY, AT DINNER
     Route: 048
     Dates: start: 20240829
  11. IRON [Concomitant]
     Active Substance: IRON
     Indication: Iron deficiency anaemia
     Dosage: 600 MG, ALTERNATE DAY
     Route: 048
     Dates: start: 20131012
  12. NEBIVOLOL HYDROCHLORIDE [Concomitant]
     Active Substance: NEBIVOLOL HYDROCHLORIDE
     Indication: Cardiac failure
     Dosage: 2.5 MG, 1X/DAY, AT BREAKFAST
     Route: 048
     Dates: start: 20091127
  13. ALPHAGAN P [Concomitant]
     Active Substance: BRIMONIDINE TARTRATE
     Indication: Ocular hypertension
     Dosage: 1 DF, 2X/DAY 1 DROP
     Route: 047
     Dates: start: 20221115
  14. SYMBICORT [Concomitant]
     Active Substance: BUDESONIDE\FORMOTEROL FUMARATE DIHYDRATE
     Indication: Obstructive airways disorder
     Dosage: 2 DF, 2X/DAY
     Dates: start: 20240321, end: 20240920
  15. ALENDRONATE SODIUM [Concomitant]
     Active Substance: ALENDRONATE SODIUM
     Dosage: 70 MG, WEEKLY, EVERY 7 DAYS
     Route: 048
     Dates: start: 20240327
  16. LOSARTAN POTASSIUM [Concomitant]
     Active Substance: LOSARTAN POTASSIUM
     Indication: Cardiac failure
     Dosage: 50 MG, 1X/DAY, AT DINNER
     Route: 048
     Dates: start: 20091127
  17. REPAGLINIDE [Concomitant]
     Active Substance: REPAGLINIDE
     Indication: Type 2 diabetes mellitus
     Dosage: 0.5 MG, 1X/DAY, AT LUNCH
     Route: 048
     Dates: start: 20240829
  18. FLUTICASONE PROPIONATE [Concomitant]
     Active Substance: FLUTICASONE PROPIONATE
     Indication: Rhinitis
     Dosage: 100 UG, 1X/DAY
     Route: 045
     Dates: start: 20140625
  19. LANTUS SOLOSTAR [Concomitant]
     Active Substance: INSULIN GLARGINE
     Indication: Type 2 diabetes mellitus
     Dosage: 30 IU, 2X/DAY
     Route: 058
     Dates: start: 20240718
  20. FUROSEMIDE [Concomitant]
     Active Substance: FUROSEMIDE
     Indication: Cardiac failure
     Dosage: 40 MG, 1X/DAY, AT BREAKFAST
     Route: 048
     Dates: start: 20091127
  21. TRAMADOL HYDROCHLORIDE [Concomitant]
     Active Substance: TRAMADOL HYDROCHLORIDE
     Indication: Meniscus injury
     Dosage: 150 MG, 1X/DAY, AT BREAKFAST
     Route: 048
     Dates: start: 20230728
  22. COLCHICINE [Concomitant]
     Active Substance: COLCHICINE
     Indication: Gouty arthritis
     Dosage: 0.5 MG, 1X/DAY
     Route: 048
     Dates: start: 20230209
  23. SYNJARDY [Concomitant]
     Active Substance: EMPAGLIFLOZIN\METFORMIN HYDROCHLORIDE
     Indication: Type 2 diabetes mellitus
     Dosage: 1 DF, 1X/DAY, AT BREAKFAST
     Route: 048
     Dates: start: 20240718
  24. VENTOLIN [Concomitant]
     Active Substance: ALBUTEROL SULFATE
     Indication: Asthma
     Dosage: 200 UG, 4X/DAY, EVERY 6H
     Dates: start: 20091127
  25. CETRAXAL PLUS [Concomitant]
     Indication: Aphasia
     Dosage: 4 DF, 3X/DAY, 4 DROPS
     Route: 001
     Dates: start: 20240719

REACTIONS (3)
  - Pancytopenia [Recovering/Resolving]
  - Drug interaction [Recovering/Resolving]
  - Off label use [Unknown]

NARRATIVE: CASE EVENT DATE: 20240703
